FAERS Safety Report 11363066 (Version 1)
Quarter: 2015Q3

REPORT INFORMATION
  Report Type: Spontaneous
  Country: DE (occurrence: None)
  Receive Date: 20150807
  Receipt Date: 20150807
  Transmission Date: 20151125
  Serious: Yes (Life-Threatening, Hospitalization, Other)
  Sender: FDA-Public Use
  Company Number: DE-AGG-07-2015-0611

PATIENT
  Age: 77 Year
  Sex: Female
  Weight: 68 kg

DRUGS (13)
  1. RANITIDINE [Concomitant]
     Active Substance: RANITIDINE\RANITIDINE HYDROCHLORIDE
  2. MULTIVITAMIN [Concomitant]
     Active Substance: VITAMINS
  3. STATIN [Concomitant]
     Active Substance: UNSPECIFIED INGREDIENT
  4. TIROFIBAN HCL [Suspect]
     Active Substance: TIROFIBAN HYDROCHLORIDE
     Indication: ANTIPLATELET THERAPY
     Route: 040
     Dates: start: 20061202, end: 20061202
  5. TIROFIBAN HCL [Suspect]
     Active Substance: TIROFIBAN HYDROCHLORIDE
     Indication: ANTIPLATELET THERAPY
     Route: 042
     Dates: start: 20071008, end: 20071009
  6. TIROFIBAN HCL [Suspect]
     Active Substance: TIROFIBAN HYDROCHLORIDE
     Indication: ANTIPLATELET THERAPY
     Route: 042
     Dates: start: 20061202, end: 20061202
  7. TILIDINE [Concomitant]
     Active Substance: TILIDINE
  8. ASPIRIN. [Concomitant]
     Active Substance: ASPIRIN
  9. TIROFIBAN HCL [Suspect]
     Active Substance: TIROFIBAN HYDROCHLORIDE
     Indication: ANTIPLATELET THERAPY
     Route: 042
     Dates: start: 20071008, end: 20071008
  10. METOCLOPRAMIDE. [Concomitant]
     Active Substance: METOCLOPRAMIDE
  11. AMITRYPTILINE [Concomitant]
     Active Substance: AMITRIPTYLINE
  12. BETA BLOCKER [Concomitant]
     Active Substance: UNSPECIFIED INGREDIENT
  13. A II BLOCKER [Concomitant]

REACTIONS (1)
  - Myocardial infarction [None]

NARRATIVE: CASE EVENT DATE: 20071008
